FAERS Safety Report 19522475 (Version 1)
Quarter: 2021Q3

REPORT INFORMATION
  Report Type: Spontaneous
  Country: MY (occurrence: MY)
  Receive Date: 20210712
  Receipt Date: 20210712
  Transmission Date: 20211014
  Serious: Yes (Other)
  Sender: FDA-Public Use
  Company Number: MY-PFIZER INC-2021808331

PATIENT
  Age: 58 Year
  Sex: Female

DRUGS (1)
  1. DALACIN C [Suspect]
     Active Substance: CLINDAMYCIN
     Indication: ACTINOMYCOSIS
     Dosage: 600 MG, EVERY 6 HOURS
     Route: 048

REACTIONS (3)
  - Off label use [Unknown]
  - Hyperhidrosis [Recovered/Resolved]
  - Rash erythematous [Recovered/Resolved]
